FAERS Safety Report 21895487 (Version 2)
Quarter: 2023Q1

REPORT INFORMATION
  Report Type: Report from Study
  Country: CA (occurrence: CA)
  Receive Date: 20230123
  Receipt Date: 20230216
  Transmission Date: 20230418
  Serious: Yes (Other)
  Sender: FDA-Public Use
  Company Number: CA-JNJFOC-20230135236

PATIENT
  Sex: Female

DRUGS (2)
  1. REMICADE [Suspect]
     Active Substance: INFLIXIMAB
     Indication: Colitis ulcerative
     Dosage: THE PATIENT^S MOTHER TREATED WITH INFLIXIMAB, RECOMBINANT (SOLUTION FOR INFUSION, INTRAVENOUS DRIP,
     Route: 064
  2. REMICADE [Suspect]
     Active Substance: INFLIXIMAB
     Dosage: THE PATIENT^S MOTHER TREATED WITH INFLIXIMAB, RECOMBINANT (SOLUTION FOR INFUSION, INTRAVENOUS DRIP,
     Route: 064

REACTIONS (3)
  - Foetal heart rate decreased [Recovered/Resolved]
  - Premature baby [Unknown]
  - Foetal exposure during pregnancy [Recovered/Resolved]

NARRATIVE: CASE EVENT DATE: 20220101
